FAERS Safety Report 6125517-3 (Version None)
Quarter: 2009Q1

REPORT INFORMATION
  Report Type: 
  Country: None (occurrence: None)
  Receive Date: 20090318
  Receipt Date: 20090306
  Transmission Date: 20090719
  Serious: Yes (Other)
  Sender: FDA-Public Use
  Company Number: IT-GDP-09405590

PATIENT
  Age: 93 Year
  Sex: Female

DRUGS (1)
  1. METVIX (METHYL AMINOLEVULINATE) HYDROCHLORIDE) 16 % [Suspect]
     Indication: ACTINIC KERATOSIS
     Dosage: (TOPICAL)
     Route: 061

REACTIONS (3)
  - ALOPECIA SCARRING [None]
  - RASH PUSTULAR [None]
  - SKIN EXFOLIATION [None]
